FAERS Safety Report 9401917 (Version 2)
Quarter: 2013Q3

REPORT INFORMATION
  Report Type: Spontaneous
  Country: US (occurrence: US)
  Receive Date: 20130716
  Receipt Date: 20130726
  Transmission Date: 20140515
  Serious: Yes (Other)
  Sender: FDA-Public Use
  Company Number: US-PFIZER INC-2013205321

PATIENT
  Age: 63 Year
  Sex: Male

DRUGS (2)
  1. INLYTA [Suspect]
     Indication: RECTAL CANCER
     Dosage: 5 MG, 2X/DAY
     Route: 048
  2. DILAUDID [Suspect]
     Indication: HEADACHE
     Dosage: 4 MG, UNK

REACTIONS (5)
  - Off label use [Unknown]
  - Convulsion [Recovered/Resolved]
  - Headache [Unknown]
  - Disease progression [Unknown]
  - Rectal cancer [Unknown]
